FAERS Safety Report 4339830-3 (Version None)
Quarter: 2004Q2

REPORT INFORMATION
  Report Type: 
  Country: None (occurrence: None)
  Receive Date: 20040412
  Receipt Date: 20040329
  Transmission Date: 20050107
  Serious: Yes (Hospitalization)
  Sender: FDA-Public Use
  Company Number: 2004AP01957

PATIENT
  Age: 85 Year
  Sex: Male

DRUGS (10)
  1. LOSEC [Suspect]
     Indication: GASTRIC ULCER
     Dosage: 20 MG DAILY PO
     Route: 048
     Dates: start: 19990101, end: 20040201
  2. LOSEC [Suspect]
     Indication: GASTRIC ULCER
     Dosage: 40 MG DAILY PO
     Route: 048
     Dates: start: 20040201, end: 20040329
  3. LOSEC [Suspect]
     Indication: GASTRIC ULCER
     Dosage: 20 MG DAILY PO
     Route: 048
     Dates: start: 20040329
  4. LASIX [Concomitant]
  5. SOTACOR [Concomitant]
  6. ISCOVER [Concomitant]
  7. PRINIVIL [Concomitant]
  8. ZYLOPRIM [Concomitant]
  9. MOVICOL [Concomitant]
  10. SLOW-K [Concomitant]

REACTIONS (8)
  - BALANCE DISORDER [None]
  - DYSPNOEA [None]
  - FALL [None]
  - GASTRIC ULCER [None]
  - OEDEMA PERIPHERAL [None]
  - TRANSIENT ISCHAEMIC ATTACK [None]
  - URINARY RETENTION [None]
  - URINARY TRACT INFECTION [None]
